FAERS Safety Report 13426383 (Version 4)
Quarter: 2018Q1

REPORT INFORMATION
  Report Type: Report from Study
  Country: US (occurrence: US)
  Receive Date: 20170411
  Receipt Date: 20180119
  Transmission Date: 20180508
  Serious: No
  Sender: FDA-Public Use
  Company Number: PHEH2017US010332

PATIENT
  Sex: Female

DRUGS (6)
  1. SANDOSTATIN LAR DEPOT [Suspect]
     Active Substance: OCTREOTIDE ACETATE
     Dosage: QMO (EVERY 4 WEEKS)
     Route: 065
     Dates: start: 20170530
  2. SANDOSTATIN LAR DEPOT [Suspect]
     Active Substance: OCTREOTIDE ACETATE
     Dosage: QMO (EVERY 4 WEEKS)
     Route: 065
     Dates: start: 20171206
  3. SANDOSTATIN LAR DEPOT [Suspect]
     Active Substance: OCTREOTIDE ACETATE
     Indication: PRODUCT USED FOR UNKNOWN INDICATION
     Dosage: QMO (EVERY 4 WEEKS)
     Route: 065
     Dates: start: 20170301
  4. SANDOSTATIN LAR DEPOT [Suspect]
     Active Substance: OCTREOTIDE ACETATE
     Dosage: QMO (EVERY 4 WEEKS)
     Route: 065
     Dates: start: 20170310
  5. SANDOSTATIN LAR DEPOT [Suspect]
     Active Substance: OCTREOTIDE ACETATE
     Dosage: QMO (EVERY 4 WEEKS)
     Route: 065
     Dates: start: 20170630
  6. SANDOSTATIN LAR DEPOT [Suspect]
     Active Substance: OCTREOTIDE ACETATE
     Dosage: QMO (EVERY 4 WEEKS)
     Route: 065
     Dates: start: 20180112

REACTIONS (1)
  - Inappropriate schedule of drug administration [Unknown]
